FAERS Safety Report 19582561 (Version 3)
Quarter: 2021Q3

REPORT INFORMATION
  Report Type: Spontaneous
  Country: GB (occurrence: GB)
  Receive Date: 20210720
  Receipt Date: 20210730
  Transmission Date: 20211014
  Serious: Yes (Other)
  Sender: FDA-Public Use
  Company Number: GB-MYLANLABS-2021M1039703

PATIENT
  Age: 68 Year
  Sex: Male

DRUGS (1)
  1. CLOZARIL [Suspect]
     Active Substance: CLOZAPINE
     Indication: SCHIZOPHRENIA
     Dosage: UNK
     Route: 048
     Dates: start: 20200213

REACTIONS (9)
  - Mood altered [Unknown]
  - Hypophagia [Unknown]
  - Tooth disorder [Unknown]
  - Neutrophil count decreased [Recovered/Resolved]
  - Malaise [Unknown]
  - Dehydration [Unknown]
  - Illness [Unknown]
  - Mouth ulceration [Not Recovered/Not Resolved]
  - White blood cell count decreased [Recovered/Resolved]

NARRATIVE: CASE EVENT DATE: 20210630
